FAERS Safety Report 9851762 (Version 1)
Quarter: 2014Q1

REPORT INFORMATION
  Report Type: Spontaneous
  Country: GB (occurrence: GB)
  Receive Date: 20140129
  Receipt Date: 20140129
  Transmission Date: 20141002
  Serious: Yes (Other)
  Sender: FDA-Public Use
  Company Number: GB-ROCHE-1336544

PATIENT
  Age: 61 Year
  Sex: Female

DRUGS (5)
  1. RIBAVIRIN [Suspect]
     Indication: HEPATITIS C
     Route: 048
     Dates: start: 20130601
  2. INTERFERON ALFA-2A [Suspect]
     Indication: HEPATITIS C
     Route: 058
     Dates: start: 20130601
  3. TELAPREVIR [Interacting]
     Indication: HEPATITIS C
     Route: 048
     Dates: start: 20130601
  4. DILTIAZEM [Interacting]
     Indication: BLOOD PRESSURE
     Route: 048
     Dates: start: 20130531
  5. DILTIAZEM [Interacting]
     Route: 048

REACTIONS (7)
  - Hypertension [Unknown]
  - Drug interaction [Unknown]
  - Nausea [Not Recovered/Not Resolved]
  - Proctalgia [Recovering/Resolving]
  - Anxiety [Unknown]
  - Influenza like illness [Not Recovered/Not Resolved]
  - Irritability [Not Recovered/Not Resolved]
